FAERS Safety Report 13241855 (Version 1)
Quarter: 2017Q1

REPORT INFORMATION
  Report Type: Spontaneous
  Country: US (occurrence: US)
  Receive Date: 20170216
  Receipt Date: 20170216
  Transmission Date: 20170509
  Serious: No
  Sender: FDA-Public Use
  Company Number: US-RELYPSA-RLY2016004647

PATIENT
  Age: 41 Year
  Sex: Female

DRUGS (1)
  1. VELTASSA [Suspect]
     Active Substance: PATIROMER
     Indication: PRODUCT USED FOR UNKNOWN INDICATION
     Dosage: 8.4 G, QD
     Route: 065
     Dates: start: 201611, end: 201611

REACTIONS (1)
  - Rash [Unknown]

NARRATIVE: CASE EVENT DATE: 201611
